FAERS Safety Report 6327679-1 (Version None)
Quarter: 2009Q3

REPORT INFORMATION
  Report Type: 
  Country: None (occurrence: None)
  Receive Date: 20090818
  Receipt Date: 20090625
  Transmission Date: 20100115
  Serious: No
  Sender: FDA-Public Use
  Company Number: WAES 0906USA05187

PATIENT
  Age: 50 Year
  Sex: Male

DRUGS (2)
  1. JANUVIA [Suspect]
     Dosage: PO
     Route: 048
  2. METFORMIN HCL [Concomitant]

REACTIONS (1)
  - DIZZINESS [None]
